FAERS Safety Report 22196921 (Version 2)
Quarter: 2023Q2

REPORT INFORMATION
  Report Type: Spontaneous
  Country: US (occurrence: US)
  Receive Date: 20230411
  Receipt Date: 20230418
  Transmission Date: 20230721
  Serious: Yes (Death, Life-Threatening, Hospitalization, Other)
  Sender: FDA-Public Use
  Company Number: US-JUBILANT CADISTA PHARMACEUTICALS-2023JUB00150

PATIENT
  Age: 30 Year
  Sex: Male
  Weight: 69.2 kg

DRUGS (16)
  1. METHYLPREDNISOLONE [Suspect]
     Active Substance: METHYLPREDNISOLONE
     Indication: Periorbital oedema
     Dosage: 1 {DF}, 1 KIT (DOSE PACK)
     Route: 048
     Dates: start: 20210902
  2. METHYLPREDNISOLONE [Suspect]
     Active Substance: METHYLPREDNISOLONE
     Indication: Swelling face
  3. PREDNISONE [Suspect]
     Active Substance: PREDNISONE
     Indication: Swelling face
     Dosage: 2 {DF} EVERY ONE DAY
     Route: 048
     Dates: start: 20210921, end: 20210925
  4. PREDNISONE [Suspect]
     Active Substance: PREDNISONE
     Indication: Periorbital oedema
     Dosage: 2 {DF} EVERY ONE DAY
     Route: 048
     Dates: start: 20210724, end: 20210727
  5. CLEMIZOLE PENICILLIN [Concomitant]
     Active Substance: CLEMIZOLE PENICILLIN
     Indication: Secondary syphilis
  6. DOXYCYCLINE [Concomitant]
     Active Substance: DOXYCYCLINE
     Indication: Swelling face
     Dosage: UNK
     Dates: start: 2021
  7. DOXYCYCLINE [Concomitant]
     Active Substance: DOXYCYCLINE
     Indication: Periorbital oedema
  8. FLUCONAZOLE [Concomitant]
     Active Substance: FLUCONAZOLE
     Indication: Oesophageal candidiasis
  9. FLUCONAZOLE [Concomitant]
     Active Substance: FLUCONAZOLE
     Indication: Oropharyngeal candidiasis
  10. FLUCONAZOLE [Concomitant]
     Active Substance: FLUCONAZOLE
     Indication: Oral candidiasis
  11. VANCOMYCIN [Concomitant]
     Active Substance: VANCOMYCIN
     Indication: Staphylococcal bacteraemia
     Route: 042
  12. EPINEPHRINE [Concomitant]
     Active Substance: EPINEPHRINE
     Indication: Periorbital oedema
     Dosage: UNK
     Dates: start: 2021
  13. EPINEPHRINE [Concomitant]
     Active Substance: EPINEPHRINE
     Indication: Swelling face
  14. SULFAMETHOXAZOLE AND TRIMETHOPRIM [Concomitant]
     Active Substance: SULFAMETHOXAZOLE\TRIMETHOPRIM
     Indication: Antifungal prophylaxis
  15. VALGANCICLOVIR HYDROCHLORIDE [Concomitant]
     Active Substance: VALGANCICLOVIR HYDROCHLORIDE
     Indication: Cytomegalovirus viraemia
  16. MEDROL [Suspect]
     Active Substance: METHYLPREDNISOLONE

REACTIONS (3)
  - Condition aggravated [Fatal]
  - Metastasis [Fatal]
  - Kaposi^s sarcoma [Fatal]

NARRATIVE: CASE EVENT DATE: 20210101
